FAERS Safety Report 17062903 (Version 1)
Quarter: 2019Q4

REPORT INFORMATION
  Report Type: Spontaneous
  Country: US (occurrence: US)
  Receive Date: 20191023
  Receipt Date: 20191023
  Transmission Date: 20200122
  Serious: Yes (Hospitalization)
  Sender: FDA-Public Use
  Company Number: None

PATIENT
  Age: 69 Year
  Sex: Female
  Weight: 105.1 kg

DRUGS (13)
  1. METOPROLOL. [Concomitant]
     Active Substance: METOPROLOL
  2. PEPCID [Concomitant]
     Active Substance: FAMOTIDINE
  3. PROCHLORPERAZINE. [Concomitant]
     Active Substance: PROCHLORPERAZINE
  4. METHYLPREDNISOLONE. [Concomitant]
     Active Substance: METHYLPREDNISOLONE
  5. POTASSIUM CHLORIDE IN SODIUM CHLORIDE INJECTION [Concomitant]
  6. ALLEGRA [Concomitant]
     Active Substance: FEXOFENADINE HYDROCHLORIDE
  7. ZOFRAN [Concomitant]
     Active Substance: ONDANSETRON HYDROCHLORIDE
  8. CISPLATIN. [Suspect]
     Active Substance: CISPLATIN
     Dates: end: 20191013
  9. NORMAL SALINE [Concomitant]
     Active Substance: SODIUM CHLORIDE
  10. FOSAPREPITANT [Concomitant]
     Active Substance: FOSAPREPITANT
  11. TRAMADOL. [Concomitant]
     Active Substance: TRAMADOL
  12. ETOPOSIDE (VP-16) [Suspect]
     Active Substance: ETOPOSIDE
     Dates: end: 20191013
  13. PROCARDIA [Concomitant]
     Active Substance: NIFEDIPINE

REACTIONS (7)
  - Dyspnoea exertional [None]
  - Chest pain [None]
  - Embolism [None]
  - Cardiac failure [None]
  - Sinus bradycardia [None]
  - Weight increased [None]
  - Dyspnoea [None]

NARRATIVE: CASE EVENT DATE: 20191013
